FAERS Safety Report 22304221 (Version 1)
Quarter: 2023Q2

REPORT INFORMATION
  Report Type: Spontaneous
  Country: US (occurrence: US)
  Receive Date: 20230510
  Receipt Date: 20230510
  Transmission Date: 20230721
  Serious: Yes (Other)
  Sender: FDA-Public Use
  Company Number: US-SUN PHARMACEUTICAL INDUSTRIES LTD-2023R1-388060

PATIENT
  Age: 5 Decade
  Sex: Female

DRUGS (2)
  1. PREDNISONE [Suspect]
     Active Substance: PREDNISONE
     Indication: Acute kidney injury
     Dosage: 60 MILLIGRAM,DAILY
     Route: 065
  2. SOLU-MEDROL [Suspect]
     Active Substance: METHYLPREDNISOLONE SODIUM SUCCINATE
     Indication: Acute kidney injury
     Dosage: 1 GRAM
     Route: 065

REACTIONS (2)
  - Haemoptysis [Unknown]
  - Haemorrhage [Unknown]
